FAERS Safety Report 11576157 (Version 1)
Quarter: 2015Q3

REPORT INFORMATION
  Report Type: Spontaneous
  Country: US (occurrence: US)
  Receive Date: 20150916
  Receipt Date: 20150916
  Transmission Date: 20151125
  Serious: No
  Sender: FDA-Public Use
  Company Number: US-ELI_LILLY_AND_COMPANY-US201305002852

PATIENT
  Age: 64 Year
  Sex: Male
  Weight: 122.45 kg

DRUGS (1)
  1. HUMALOG MIX75/25 [Suspect]
     Active Substance: INSULIN LISPRO
     Indication: DIABETES MELLITUS
     Dosage: 10 U, QD
     Dates: start: 20130504

REACTIONS (5)
  - Drug ineffective [Unknown]
  - Sinusitis [Unknown]
  - Immune system disorder [Unknown]
  - Cough [Not Recovered/Not Resolved]
  - Blood glucose increased [Not Recovered/Not Resolved]
